FAERS Safety Report 16244548 (Version 2)
Quarter: 2020Q2

REPORT INFORMATION
  Report Type: Spontaneous
  Country: US (occurrence: US)
  Receive Date: 20190426
  Receipt Date: 20200626
  Transmission Date: 20200713
  Serious: No
  Sender: FDA-Public Use
  Company Number: US-SA-2019SA007936

PATIENT

DRUGS (5)
  1. NOVOLOG [Concomitant]
     Active Substance: INSULIN ASPART
     Route: 065
  2. TOUJEO [Suspect]
     Active Substance: INSULIN GLARGINE
     Indication: TYPE 1 DIABETES MELLITUS
     Dosage: 56 U, QD
     Route: 065
  3. TOUJEO [Suspect]
     Active Substance: INSULIN GLARGINE
     Dosage: 48 IU, AT NIGHT
     Route: 065
  4. TOUJEO [Suspect]
     Active Substance: INSULIN GLARGINE
     Dosage: 52 IU
     Route: 065
  5. TOUJEO [Suspect]
     Active Substance: INSULIN GLARGINE
     Indication: TYPE 2 DIABETES MELLITUS
     Dosage: 42 U, HS
     Route: 065
     Dates: start: 201811

REACTIONS (5)
  - Blood glucose increased [Unknown]
  - Unevaluable event [Unknown]
  - Product dose omission [Unknown]
  - Device operational issue [Unknown]
  - Intentional product use issue [Unknown]
